FAERS Safety Report 9142353 (Version 1)
Quarter: 2013Q1

REPORT INFORMATION
  Report Type: Spontaneous
  Country: US (occurrence: US)
  Receive Date: 20130306
  Receipt Date: 20130306
  Transmission Date: 20140127
  Serious: No
  Sender: FDA-Public Use
  Company Number: US-009507513-1302USA013282

PATIENT
  Sex: 0

DRUGS (4)
  1. PEGINTRON [Suspect]
     Dosage: UNK
  2. PEGINTRON [Suspect]
     Dosage: UNK
     Dates: start: 201302
  3. RIBAVIRIN [Suspect]
     Dosage: UNK
     Route: 048
  4. RIBAVIRIN [Suspect]
     Dosage: UNK
     Route: 048
     Dates: start: 201302

REACTIONS (5)
  - Drug ineffective [Unknown]
  - Tachycardia [Unknown]
  - Haematocrit decreased [Unknown]
  - Haemoglobin decreased [Unknown]
  - Anaemia [Unknown]
